FAERS Safety Report 19384085 (Version 1)
Quarter: 2021Q2

REPORT INFORMATION
  Report Type: Spontaneous
  Country: JP (occurrence: JP)
  Receive Date: 20210608
  Receipt Date: 20210608
  Transmission Date: 20210717
  Serious: Yes (Death, Hospitalization)
  Sender: FDA-Public Use
  Company Number: JP-TEVA-2021-JP-1919894

PATIENT
  Age: 66 Year
  Sex: Male

DRUGS (7)
  1. NICORANDIL [Suspect]
     Active Substance: NICORANDIL
     Indication: HYPERTENSION
     Route: 042
  2. METHYLPREDNISOLONE. [Suspect]
     Active Substance: METHYLPREDNISOLONE
     Indication: MICROSCOPIC POLYANGIITIS
     Dosage: 1000 MILLIGRAM DAILY;
     Route: 042
  3. AMLODIPINE [Suspect]
     Active Substance: AMLODIPINE BESYLATE
     Indication: HYPERTENSION
     Dosage: 5 MILLIGRAM DAILY;
     Route: 065
  4. ISOSORBIDE DINITRATE. [Concomitant]
     Active Substance: ISOSORBIDE DINITRATE
     Indication: CHEST PAIN
     Route: 065
  5. BETAMETHASONE. [Suspect]
     Active Substance: BETAMETHASONE
     Indication: MICROSCOPIC POLYANGIITIS
     Dosage: 1 MG/KG/DAY
     Route: 065
  6. RITUXIMAB. [Concomitant]
     Active Substance: RITUXIMAB
     Indication: MICROSCOPIC POLYANGIITIS
     Route: 065
  7. TRAZENTA [Concomitant]
     Active Substance: LINAGLIPTIN
     Indication: STEROID DIABETES
     Route: 065

REACTIONS (9)
  - Hypertension [Fatal]
  - Intra-abdominal haemorrhage [Fatal]
  - Steroid diabetes [Unknown]
  - Drug ineffective [Unknown]
  - Arterial rupture [Fatal]
  - Cardio-respiratory arrest [Fatal]
  - Posterior reversible encephalopathy syndrome [Unknown]
  - Chest pain [Unknown]
  - Shock haemorrhagic [Fatal]
